FAERS Safety Report 18652701 (Version 3)
Quarter: 2021Q1

REPORT INFORMATION
  Report Type: Spontaneous
  Country: CH (occurrence: CH)
  Receive Date: 20201222
  Receipt Date: 20210122
  Transmission Date: 20210419
  Serious: Yes (Death)
  Sender: FDA-Public Use
  Company Number: CH-ELI_LILLY_AND_COMPANY-CH202012010429

PATIENT
  Sex: Male
  Weight: 62 kg

DRUGS (4)
  1. CAELYX [Concomitant]
     Active Substance: DOXORUBICIN HYDROCHLORIDE
     Indication: LEIOMYOSARCOMA METASTATIC
     Dosage: UNK
     Route: 065
     Dates: start: 201711, end: 201805
  2. LARTRUVO [Suspect]
     Active Substance: OLARATUMAB
     Indication: LEIOMYOSARCOMA METASTATIC
     Dosage: 1400 MG
     Route: 042
     Dates: start: 20171120, end: 20190426
  3. CANSARTAN [Concomitant]
     Active Substance: CANDESARTAN CILEXETIL
     Indication: HYPERTENSION
     Dosage: 16 UNK
  4. ZOMETA [Concomitant]
     Active Substance: ZOLEDRONIC ACID
     Indication: METASTASES TO BONE
     Dosage: UNK
     Dates: start: 20170101, end: 20190101

REACTIONS (3)
  - Stomatitis [Unknown]
  - Neoplasm progression [Fatal]
  - Nausea [Unknown]

NARRATIVE: CASE EVENT DATE: 20200902
